FAERS Safety Report 22279788 (Version 1)
Quarter: 2023Q2

REPORT INFORMATION
  Report Type: Spontaneous
  Country: US (occurrence: None)
  Receive Date: 20230502
  Receipt Date: 20230502
  Transmission Date: 20230721
  Serious: Yes (Other)
  Sender: FDA-Public Use
  Company Number: None

PATIENT
  Sex: Female

DRUGS (4)
  1. XOLAIR [Suspect]
     Active Substance: OMALIZUMAB
     Indication: Asthma
     Dosage: FREQUENCY : MONTHLY;?
     Route: 058
     Dates: start: 20220125
  2. PULMOMATE/MIS NEBULIZER [Concomitant]
  3. QVAR AER [Concomitant]
  4. SINGULAIR TAB [Concomitant]

REACTIONS (2)
  - Emergency care [None]
  - Treatment noncompliance [None]
